FAERS Safety Report 7724606-7 (Version None)
Quarter: 2011Q3

REPORT INFORMATION
  Report Type: 
  Country: None (occurrence: None)
  Receive Date: 20110829
  Receipt Date: 20110811
  Transmission Date: 20111222
  Serious: Yes (Death, Other)
  Sender: FDA-Public Use
  Company Number: 2011MA011715

PATIENT
  Age: 34 Year
  Sex: Male

DRUGS (1)
  1. OXYCODONE HCL [Suspect]

REACTIONS (5)
  - ACCIDENTAL DEATH [None]
  - BRAIN INJURY [None]
  - SUDDEN DEATH [None]
  - TOXICITY TO VARIOUS AGENTS [None]
  - DRUG ABUSE [None]
